FAERS Safety Report 11720006 (Version 1)
Quarter: 2015Q4

REPORT INFORMATION
  Report Type: Spontaneous
  Country: US (occurrence: US)
  Receive Date: 20151110
  Receipt Date: 20151110
  Transmission Date: 20160304
  Serious: No
  Sender: FDA-Public Use
  Company Number: US-PERRIGO-14US011474

PATIENT
  Age: 45 Year
  Sex: Male
  Weight: 174.6 kg

DRUGS (1)
  1. CIMETIDINE  200 MG 022 [Suspect]
     Active Substance: CIMETIDINE
     Indication: ACCIDENTAL EXPOSURE TO PRODUCT
     Dosage: 800 MG, SINGLE AT 1530
     Route: 048
     Dates: start: 20141117, end: 20141117

REACTIONS (1)
  - Accidental exposure to product [Recovered/Resolved]

NARRATIVE: CASE EVENT DATE: 20141117
